FAERS Safety Report 9719124 (Version 1)
Quarter: 2013Q4

REPORT INFORMATION
  Report Type: Spontaneous
  Country: KR (occurrence: KR)
  Receive Date: 20131127
  Receipt Date: 20131127
  Transmission Date: 20140711
  Serious: Yes (Other)
  Sender: FDA-Public Use
  Company Number: PHHY2013KR133119

PATIENT
  Age: 45 Year
  Sex: Male

DRUGS (3)
  1. OXALIPLATIN [Suspect]
     Indication: ADENOCARCINOMA OF COLON
  2. FOLINIC ACID [Suspect]
     Indication: ADENOCARCINOMA OF COLON
  3. 5-FLUOROURACIL [Suspect]
     Indication: ADENOCARCINOMA OF COLON

REACTIONS (5)
  - Splenomegaly [Unknown]
  - Hepatic necrosis [Unknown]
  - Hepatic fibrosis [Unknown]
  - Portal hypertension [Unknown]
  - Thrombocytopenia [Unknown]
